FAERS Safety Report 7390530-5 (Version None)
Quarter: 2011Q2

REPORT INFORMATION
  Report Type: 
  Country: None (occurrence: None)
  Receive Date: 20110403
  Receipt Date: 20110316
  Transmission Date: 20111010
  Serious: No
  Sender: FDA-Public Use
  Company Number: US-ROXANE LABORATORIES, INC.-2011-RO-00416RO

PATIENT
  Sex: Female

DRUGS (2)
  1. INSULIN [Concomitant]
  2. AMLODIPINE [Suspect]

REACTIONS (1)
  - OEDEMA PERIPHERAL [None]
